FAERS Safety Report 18667334 (Version 2)
Quarter: 2021Q1

REPORT INFORMATION
  Report Type: Spontaneous
  Country: US (occurrence: US)
  Receive Date: 20201228
  Receipt Date: 20210107
  Transmission Date: 20210419
  Serious: Yes (Other)
  Sender: FDA-Public Use
  Company Number: US-SPECGX-T202002406

PATIENT
  Sex: Female

DRUGS (1)
  1. METHADONE [Suspect]
     Active Substance: METHADONE HYDROCHLORIDE
     Indication: PAIN
     Dosage: 5 MILLIGRAM, TID
     Route: 048
     Dates: start: 2013

REACTIONS (5)
  - Fatigue [Recovering/Resolving]
  - Fall [Unknown]
  - Femur fracture [Recovering/Resolving]
  - Bladder irritation [Not Recovered/Not Resolved]
  - Knee operation [Unknown]

NARRATIVE: CASE EVENT DATE: 2019
